FAERS Safety Report 10748509 (Version 3)
Quarter: 2018Q3

REPORT INFORMATION
  Report Type: Spontaneous
  Country: US (occurrence: US)
  Receive Date: 20150129
  Receipt Date: 20180927
  Transmission Date: 20181010
  Serious: Yes (Other)
  Sender: FDA-Public Use
  Company Number: US-AMGEN-USASP2015007913

PATIENT
  Age: 62 Year
  Sex: Male

DRUGS (1)
  1. XGEVA [Suspect]
     Active Substance: DENOSUMAB
     Indication: METASTASES TO BONE
     Dosage: 120 MG, UNK
     Route: 065
     Dates: start: 20140814

REACTIONS (5)
  - Weight decreased [Unknown]
  - Osteonecrosis of jaw [Not Recovered/Not Resolved]
  - Tooth fracture [Unknown]
  - Tooth loss [Unknown]
  - Tooth disorder [Unknown]

NARRATIVE: CASE EVENT DATE: 201411
